FAERS Safety Report 6099245-7 (Version None)
Quarter: 2009Q1

REPORT INFORMATION
  Report Type: 
  Country: None (occurrence: None)
  Receive Date: 20090303
  Receipt Date: 20090225
  Transmission Date: 20090719
  Serious: Yes (Hospitalization)
  Sender: FDA-Public Use
  Company Number: US-JNJFOC-20090206471

PATIENT
  Sex: Female
  Weight: 39.01 kg

DRUGS (6)
  1. FENTANYL TRANSDERMAL SYSTEM [Suspect]
     Indication: ABDOMINAL PAIN
     Route: 062
  2. FENTANYL TRANSDERMAL SYSTEM [Suspect]
     Indication: BACK PAIN
     Route: 062
  3. KLONOPIN [Concomitant]
     Indication: ANXIETY
     Route: 048
  4. LEXAPRO [Concomitant]
     Indication: DEPRESSION
     Route: 048
  5. REGLAN [Concomitant]
     Indication: GASTROINTESTINAL DISORDER
     Route: 048
  6. PRILOSEC [Concomitant]
     Indication: GASTROINTESTINAL DISORDER
     Route: 048

REACTIONS (4)
  - DYSPNOEA [None]
  - HALLUCINATION [None]
  - MYOCARDIAL INFARCTION [None]
  - THERAPY CESSATION [None]
